FAERS Safety Report 8447147-0 (Version None)
Quarter: 2012Q2

REPORT INFORMATION
  Report Type: 
  Country: None (occurrence: None)
  Receive Date: 20120619
  Receipt Date: 20110624
  Transmission Date: 20120825
  Serious: No
  Sender: FDA-Public Use
  Company Number: US-PFIZER INC-K201100756

PATIENT
  Age: 57 Year
  Sex: Male
  Weight: 70.295 kg

DRUGS (3)
  1. LORAZEPAM [Concomitant]
     Indication: INSOMNIA
     Dosage: UNK
  2. LEVOXYL [Suspect]
     Indication: HYPOTHYROIDISM
     Dosage: 125 MCG, QD
     Route: 048
  3. CRESTOR [Concomitant]
     Indication: BLOOD CHOLESTEROL INCREASED
     Dosage: UNK

REACTIONS (4)
  - PALPITATIONS [None]
  - DYSPNOEA [None]
  - DRY THROAT [None]
  - ARTHRALGIA [None]
